FAERS Safety Report 25722952 (Version 1)
Quarter: 2025Q3

REPORT INFORMATION
  Report Type: Spontaneous
  Country: US (occurrence: US)
  Receive Date: 20250825
  Receipt Date: 20250825
  Transmission Date: 20251021
  Serious: Yes (Death)
  Sender: AMGEN
  Company Number: US-AMGEN-USASP2025164291

PATIENT

DRUGS (6)
  1. RITUXIMAB [Suspect]
     Active Substance: RITUXIMAB
     Indication: Diffuse large B-cell lymphoma refractory
     Dosage: UNK, Q3WK (MORE THAN OR EQUAL TO 6 CYCLES)
     Route: 065
  2. RITUXIMAB [Suspect]
     Active Substance: RITUXIMAB
     Indication: Diffuse large B-cell lymphoma recurrent
  3. ZILOVERTAMAB VEDOTIN [Suspect]
     Active Substance: ZILOVERTAMAB VEDOTIN
     Indication: Diffuse large B-cell lymphoma refractory
     Dosage: 2 MILLIGRAM/KILOGRAM, Q3WK (MORE THAN OR EQUAL TO 6 CYCLES)
     Route: 065
  4. ZILOVERTAMAB VEDOTIN [Suspect]
     Active Substance: ZILOVERTAMAB VEDOTIN
     Indication: Diffuse large B-cell lymphoma recurrent
  5. GEMCITABINE HYDROCHLORIDE\OXALIPLATIN [Suspect]
     Active Substance: GEMCITABINE HYDROCHLORIDE\OXALIPLATIN
     Indication: Diffuse large B-cell lymphoma refractory
     Dosage: UNK, Q3WK (MORE THAN OR EQUAL TO 6 CYCLES)
     Route: 065
  6. GEMCITABINE HYDROCHLORIDE\OXALIPLATIN [Suspect]
     Active Substance: GEMCITABINE HYDROCHLORIDE\OXALIPLATIN
     Indication: Diffuse large B-cell lymphoma recurrent

REACTIONS (1)
  - Sepsis [Fatal]
